FAERS Safety Report 8693938 (Version 2)
Quarter: 2012Q4

REPORT INFORMATION
  Report Type: 
  Country: US (occurrence: US)
  Receive Date: 20120731
  Receipt Date: 20121106
  Transmission Date: 20130627
  Serious: No
  Sender: FDA-Public Use
  Company Number: US-PFIZER INC-2012179845

PATIENT
  Age: 48 Year
  Sex: Female
  Weight: 68.03 kg

DRUGS (3)
  1. LYRICA [Suspect]
     Indication: FIBROMYALGIA
     Dosage: UNK
     Dates: start: 200911, end: 2012
  2. AMITRIPTYLINE [Concomitant]
     Indication: SLEEP PROBLEM
     Dosage: 75 mg, daily
  3. AMITRIPTYLINE [Concomitant]
     Indication: MUSCLE PAIN

REACTIONS (2)
  - Post-traumatic stress disorder [Unknown]
  - Abnormal dreams [Unknown]
